FAERS Safety Report 8151367-2 (Version None)
Quarter: 2012Q1

REPORT INFORMATION
  Report Type: 
  Country: None (occurrence: None)
  Receive Date: 20120220
  Receipt Date: 20120213
  Transmission Date: 20120608
  Serious: Yes (Hospitalization)
  Sender: FDA-Public Use
  Company Number: RU-ROCHE-1022510

PATIENT
  Age: 42 Year
  Sex: Male
  Weight: 76 kg

DRUGS (2)
  1. VEMURAFENIB [Suspect]
     Indication: METASTATIC MALIGNANT MELANOMA
     Dosage: DATE OF LAST DOSE PRIOR TO SAE:14/DEC/2011
     Route: 048
     Dates: start: 20111129, end: 20111214
  2. VEMURAFENIB [Suspect]
     Dosage: RESTARTED WITH REDUCED DOSE
     Route: 048
     Dates: start: 20111228

REACTIONS (1)
  - PULMONARY EMBOLISM [None]
